FAERS Safety Report 7131416-0 (Version None)
Quarter: 2010Q4

REPORT INFORMATION
  Report Type: 
  Country: None (occurrence: None)
  Receive Date: 20101201
  Receipt Date: 20101117
  Transmission Date: 20110411
  Serious: Yes (Death, Life-Threatening, Hospitalization)
  Sender: FDA-Public Use
  Company Number: US-ACTELION-A-US2010-41476

PATIENT

DRUGS (10)
  1. BOSENTAN TABLET UNKNOWN US MG [Suspect]
     Indication: PULMONARY ARTERIAL HYPERTENSION
     Dosage: UNK
     Route: 048
     Dates: start: 20040219
  2. COUMADIN [Concomitant]
  3. LIPITOR [Concomitant]
  4. CARDIZEM [Concomitant]
  5. LASIX [Concomitant]
  6. APRESOLINE [Concomitant]
  7. HUMALIN [Concomitant]
  8. SLO-MAG [Concomitant]
  9. BENICAR [Concomitant]
  10. SPIRONOLACTONE [Concomitant]

REACTIONS (10)
  - AORTIC STENOSIS [None]
  - AORTIC VALVE INCOMPETENCE [None]
  - CARDIAC FAILURE CONGESTIVE [None]
  - CONDITION AGGRAVATED [None]
  - DISEASE PROGRESSION [None]
  - DYSPNOEA [None]
  - MITRAL VALVE INCOMPETENCE [None]
  - PULMONARY ARTERIAL HYPERTENSION [None]
  - TRICUSPID VALVE INCOMPETENCE [None]
  - URINARY TRACT INFECTION [None]
